FAERS Safety Report 5624615-8 (Version None)
Quarter: 2008Q1

REPORT INFORMATION
  Report Type: 
  Country: None (occurrence: None)
  Receive Date: 20080213
  Receipt Date: 20080130
  Transmission Date: 20080703
  Serious: Yes (Death)
  Sender: FDA-Public Use
  Company Number: JP-AMGEN-US257372

PATIENT
  Sex: Female

DRUGS (9)
  1. ENBREL [Suspect]
     Indication: RHEUMATOID ARTHRITIS
     Route: 058
     Dates: start: 20071011, end: 20071206
  2. ALFAROL [Concomitant]
     Route: 048
  3. ISCOTIN [Concomitant]
     Route: 048
     Dates: start: 20070927
  4. PREDNISOLONE [Concomitant]
     Route: 048
     Dates: start: 20071022
  5. RHEUMATREX [Concomitant]
  6. LOXONIN [Concomitant]
     Route: 048
     Dates: start: 20070313
  7. PARIET [Concomitant]
     Route: 048
     Dates: start: 20070313
  8. MOBIC [Concomitant]
     Route: 048
  9. PYDOXAL [Concomitant]
     Route: 048
     Dates: start: 20070927

REACTIONS (3)
  - CEREBRAL HAEMORRHAGE [None]
  - CONDITION AGGRAVATED [None]
  - RHEUMATOID ARTHRITIS [None]
